FAERS Safety Report 17214766 (Version 1)
Quarter: 2020Q1

REPORT INFORMATION
  Report Type: Spontaneous
  Country: US (occurrence: US)
  Receive Date: 20191229
  Receipt Date: 20191229
  Transmission Date: 20200409
  Serious: Yes (Disabling)
  Sender: FDA-Public Use
  Company Number: None

PATIENT
  Age: 43 Year
  Sex: Female
  Weight: 42.75 kg

DRUGS (2)
  1. CIPROFLOXACIN. [Suspect]
     Active Substance: CIPROFLOXACIN
     Route: 048
     Dates: start: 20161215, end: 20161225
  2. CIPROFLOXACIN. [Concomitant]
     Active Substance: CIPROFLOXACIN
     Dates: start: 20161215, end: 20161225

REACTIONS (8)
  - Myalgia [None]
  - Arthralgia [None]
  - Depression [None]
  - Toxicity to various agents [None]
  - Gastrointestinal disorder [None]
  - Palpitations [None]
  - Anxiety [None]
  - Tendon pain [None]

NARRATIVE: CASE EVENT DATE: 20161215
